FAERS Safety Report 13537638 (Version 1)
Quarter: 2017Q2

REPORT INFORMATION
  Report Type: Report from Study
  Country: US (occurrence: US)
  Receive Date: 20170511
  Receipt Date: 20170511
  Transmission Date: 20170830
  Serious: No
  Sender: FDA-Public Use
  Company Number: PHEH2017US013945

PATIENT
  Age: 46 Year
  Sex: Female

DRUGS (3)
  1. ILARIS [Suspect]
     Active Substance: CANAKINUMAB
     Dosage: 150 MG, EVERY 28 DAYS
     Route: 058
     Dates: start: 201609, end: 201612
  2. ILARIS [Suspect]
     Active Substance: CANAKINUMAB
     Indication: FAMILIAL MEDITERRANEAN FEVER
     Dosage: UNK
     Route: 058
  3. ILARIS [Suspect]
     Active Substance: CANAKINUMAB
     Dosage: 300 MG, EVERY 28 DAYS
     Route: 058
     Dates: start: 201701

REACTIONS (9)
  - Asthenia [Unknown]
  - Pain in extremity [Unknown]
  - Tremor [Unknown]
  - Hypoaesthesia [Unknown]
  - Feeling abnormal [Unknown]
  - Pain [Unknown]
  - Chest discomfort [Unknown]
  - Joint stiffness [Unknown]
  - Paraesthesia [Unknown]
